FAERS Safety Report 12232241 (Version 1)
Quarter: 2016Q2

REPORT INFORMATION
  Report Type: Spontaneous
  Country: GB (occurrence: GB)
  Receive Date: 20160401
  Receipt Date: 20160401
  Transmission Date: 20160815
  Serious: Yes (Other)
  Sender: FDA-Public Use
  Company Number: GB-NOVOPROD-485626

PATIENT
  Age: 64 Year
  Sex: Female
  Weight: 59.87 kg

DRUGS (1)
  1. VAGIFEM [Suspect]
     Active Substance: ESTRADIOL
     Indication: URETHRAL ATROPHY
     Dosage: 1 PER DAY FOR 14 DAYS THEN 2 PER WEEK
     Route: 067
     Dates: start: 201601

REACTIONS (2)
  - Chest pain [Recovered/Resolved]
  - Dyspepsia [Recovered/Resolved]

NARRATIVE: CASE EVENT DATE: 201601
